FAERS Safety Report 10424792 (Version 2)
Quarter: 2014Q3

REPORT INFORMATION
  Report Type: Spontaneous
  Country: GB (occurrence: GB)
  Receive Date: 20140902
  Receipt Date: 20140912
  Transmission Date: 20150326
  Serious: Yes (Other)
  Sender: FDA-Public Use
  Company Number: GB-PFIZER INC-2014240947

PATIENT
  Age: 62 Year
  Sex: Female

DRUGS (2)
  1. AMLODIPINE BESILATE [Suspect]
     Active Substance: AMLODIPINE BESYLATE
     Dosage: 10 MG, 1X/DAY
     Dates: start: 201401
  2. AMLODIPINE BESILATE [Suspect]
     Active Substance: AMLODIPINE BESYLATE
     Indication: HYPERTENSION
     Dosage: 5 MG, 1X/DAY
     Dates: end: 201401

REACTIONS (3)
  - Brain oedema [Unknown]
  - Cerebral disorder [Unknown]
  - Headache [Recovering/Resolving]

NARRATIVE: CASE EVENT DATE: 201405
